FAERS Safety Report 19742252 (Version 3)
Quarter: 2021Q4

REPORT INFORMATION
  Report Type: Spontaneous
  Country: JP (occurrence: JP)
  Receive Date: 20210825
  Receipt Date: 20211207
  Transmission Date: 20220304
  Serious: Yes (Death, Hospitalization, Other)
  Sender: FDA-Public Use
  Company Number: JP-NOVARTISPH-NVSJ2021JP012380

PATIENT
  Age: 69 Year
  Sex: Female

DRUGS (14)
  1. AFINITOR [Suspect]
     Active Substance: EVEROLIMUS
     Indication: Pancreatic neuroendocrine tumour
     Dosage: 5 MG
     Route: 048
     Dates: start: 20121217, end: 20160614
  2. AFINITOR [Suspect]
     Active Substance: EVEROLIMUS
     Indication: Insulinoma
     Dosage: 5 MG
     Route: 048
     Dates: start: 20180822, end: 20181031
  3. SANDOSTATIN [Suspect]
     Active Substance: OCTREOTIDE ACETATE
     Indication: Pancreatic neuroendocrine tumour
     Dosage: 100 UG
     Route: 058
     Dates: start: 20130111
  4. SANDOSTATIN [Suspect]
     Active Substance: OCTREOTIDE ACETATE
     Indication: Insulinoma
  5. SANDOSTATIN [Suspect]
     Active Substance: OCTREOTIDE ACETATE
  6. OCTREOTIDE ACETATE [Suspect]
     Active Substance: OCTREOTIDE ACETATE
     Indication: Pancreatic neuroendocrine tumour
     Dosage: 20 MG
     Route: 030
     Dates: start: 20130123
  7. OCTREOTIDE ACETATE [Suspect]
     Active Substance: OCTREOTIDE ACETATE
     Indication: Insulinoma
  8. OCTREOTIDE ACETATE [Suspect]
     Active Substance: OCTREOTIDE ACETATE
  9. SUNITINIB MALATE [Suspect]
     Active Substance: SUNITINIB MALATE
     Indication: Pancreatic neuroendocrine tumour
     Dosage: UNK
     Route: 065
  10. SUNITINIB MALATE [Suspect]
     Active Substance: SUNITINIB MALATE
     Indication: Insulinoma
  11. DIAZOXIDE [Suspect]
     Active Substance: DIAZOXIDE
     Indication: Hypoglycaemia
     Dosage: UNK
     Route: 065
     Dates: start: 20121207
  12. STREPTOZOCIN [Concomitant]
     Active Substance: STREPTOZOCIN
     Indication: Pancreatic neuroendocrine tumour
     Dosage: UNK
     Route: 065
  13. STREPTOZOCIN [Concomitant]
     Active Substance: STREPTOZOCIN
     Indication: Insulinoma
  14. LANREOTIDE ACETATE [Concomitant]
     Active Substance: LANREOTIDE ACETATE
     Indication: Product used for unknown indication
     Dosage: UNK
     Route: 065

REACTIONS (11)
  - General physical health deterioration [Fatal]
  - Asthenia [Fatal]
  - Femoral neck fracture [Recovered/Resolved]
  - Metastases to liver [Unknown]
  - Malignant neoplasm progression [Unknown]
  - Myelosuppression [Recovered/Resolved]
  - Metastases to peritoneum [Not Recovered/Not Resolved]
  - Hypoglycaemia [Not Recovered/Not Resolved]
  - Fluid retention [Recovered/Resolved]
  - Fall [Unknown]
  - Product use in unapproved indication [Unknown]

NARRATIVE: CASE EVENT DATE: 20190513
